FAERS Safety Report 10192532 (Version 1)
Quarter: 2014Q2

REPORT INFORMATION
  Report Type: Spontaneous
  Country: AU (occurrence: None)
  Receive Date: 20140521
  Receipt Date: 20140521
  Transmission Date: 20141212
  Serious: Yes (Hospitalization)
  Sender: FDA-Public Use
  Company Number: 2014-AU-000020

PATIENT
  Age: 65 Year
  Sex: Male

DRUGS (3)
  1. ERYTHROMYCIN [Suspect]
     Route: 048
  2. TACROLIMUS [Suspect]
     Route: 048
  3. PREDNISOLONE [Concomitant]

REACTIONS (3)
  - Renal failure acute [None]
  - Toxicity to various agents [None]
  - Drug interaction [None]
